FAERS Safety Report 10039901 (Version 1)
Quarter: 2014Q1

REPORT INFORMATION
  Report Type: Spontaneous
  Country: AU (occurrence: AU)
  Receive Date: 20140326
  Receipt Date: 20140326
  Transmission Date: 20141002
  Serious: Yes (Other)
  Sender: FDA-Public Use
  Company Number: AU-PFIZER INC-2014083856

PATIENT
  Sex: Female

DRUGS (2)
  1. EFEXOR XR [Suspect]
     Dosage: 37.5 MG, UNK
  2. EFEXOR XR [Suspect]
     Dosage: 75 MG, UNK

REACTIONS (4)
  - Benign renal neoplasm [Unknown]
  - Back pain [Unknown]
  - Feeling abnormal [Unknown]
  - Muscle tightness [Unknown]
